FAERS Safety Report 14954843 (Version 1)
Quarter: 2018Q2

REPORT INFORMATION
  Report Type: Report from Study
  Country: None (occurrence: NL)
  Receive Date: 20180530
  Receipt Date: 20180530
  Transmission Date: 20180711
  Serious: Yes (Hospitalization, Other)
  Sender: FDA-Public Use
  Company Number: NL-ABBVIE-18K-114-2371642-00

PATIENT
  Age: 47 Year
  Sex: Female

DRUGS (1)
  1. HUMIRA [Suspect]
     Active Substance: ADALIMUMAB
     Indication: PSORIATIC ARTHROPATHY
     Route: 058
     Dates: start: 20180406, end: 20180525

REACTIONS (8)
  - Malaise [Recovered/Resolved]
  - Fatigue [Recovered/Resolved]
  - Bacterial infection [Unknown]
  - Lymphadenopathy [Unknown]
  - Viral infection [Unknown]
  - Pyrexia [Recovered/Resolved]
  - Neoplasm malignant [Unknown]
  - Therapeutic response shortened [Unknown]

NARRATIVE: CASE EVENT DATE: 2018
